FAERS Safety Report 13499005 (Version 1)
Quarter: 2017Q2

REPORT INFORMATION
  Report Type: Spontaneous
  Country: US (occurrence: US)
  Receive Date: 20170429
  Receipt Date: 20170429
  Transmission Date: 20170830
  Serious: Yes (Other)
  Sender: FDA-Public Use
  Company Number: None

PATIENT
  Age: 74 Year
  Sex: Male
  Weight: 83.25 kg

DRUGS (18)
  1. LORATADINE. [Concomitant]
     Active Substance: LORATADINE
  2. ALLEGRA [Concomitant]
     Active Substance: FEXOFENADINE HYDROCHLORIDE
  3. NEXIUM [Concomitant]
     Active Substance: ESOMEPRAZOLE MAGNESIUM
  4. COZAAR [Concomitant]
     Active Substance: LOSARTAN POTASSIUM
  5. RITALIN [Concomitant]
     Active Substance: METHYLPHENIDATE HYDROCHLORIDE
  6. CIALIS [Suspect]
     Active Substance: TADALAFIL
     Indication: ERECTILE DYSFUNCTION
     Dosage: ?          QUANTITY:1 TABLET(S);?
     Route: 048
  7. NORVASC [Concomitant]
     Active Substance: AMLODIPINE BESYLATE
  8. VITAMIN D3 [Concomitant]
     Active Substance: CHOLECALCIFEROL
  9. FISH OIL [Concomitant]
     Active Substance: FISH OIL
  10. NEUROPATHY MEDICATIONS [Concomitant]
     Active Substance: UNSPECIFIED INGREDIENT
  11. CELEXA [Concomitant]
     Active Substance: CITALOPRAM HYDROBROMIDE
  12. FLONASE [Concomitant]
     Active Substance: FLUTICASONE PROPIONATE
  13. BUPROPION. [Concomitant]
     Active Substance: BUPROPION
  14. CYTOMEL [Concomitant]
     Active Substance: LIOTHYRONINE SODIUM
  15. METOPROLOL. [Concomitant]
     Active Substance: METOPROLOL
  16. MULTIVITAMIN [Concomitant]
     Active Substance: VITAMINS
  17. MULTIMINERAL [Concomitant]
  18. MELATONIN [Concomitant]
     Active Substance: MELATONIN

REACTIONS (3)
  - Diplopia [None]
  - Penis disorder [None]
  - Visual impairment [None]

NARRATIVE: CASE EVENT DATE: 20150401
